FAERS Safety Report 10251389 (Version 2)
Quarter: 2015Q4

REPORT INFORMATION
  Report Type: Spontaneous
  Country: GB (occurrence: GB)
  Receive Date: 20140622
  Receipt Date: 20151127
  Transmission Date: 20160304
  Serious: Yes (Death, Other)
  Sender: FDA-Public Use
  Company Number: GB-JNJFOC-20140612954

PATIENT
  Age: 34 Year
  Sex: Male

DRUGS (2)
  1. IMODIUM [Suspect]
     Active Substance: LOPERAMIDE HYDROCHLORIDE
     Indication: VOMITING
     Route: 065
  2. IMODIUM [Suspect]
     Active Substance: LOPERAMIDE HYDROCHLORIDE
     Indication: DIARRHOEA
     Route: 065

REACTIONS (10)
  - Septic shock [Fatal]
  - Arteriosclerosis coronary artery [None]
  - Anaphylactic shock [Fatal]
  - Cardiac arrest [Recovering/Resolving]
  - Generalised oedema [None]
  - Dyspnoea [Not Recovered/Not Resolved]
  - Abdominal distension [None]
  - Pulseless electrical activity [None]
  - Gastrointestinal oedema [None]
  - Pulmonary oedema [None]
